FAERS Safety Report 8360670-2 (Version None)
Quarter: 2012Q2

REPORT INFORMATION
  Report Type: 
  Country: None (occurrence: None)
  Receive Date: 20120515
  Receipt Date: 20120424
  Transmission Date: 20120825
  Serious: Yes (Hospitalization)
  Sender: FDA-Public Use
  Company Number: US-ACTELION-A-US2006-13449

PATIENT

DRUGS (3)
  1. TRACLEER [Suspect]
     Indication: PULMONARY ARTERIAL HYPERTENSION
     Dosage: UNK
     Route: 048
     Dates: start: 20040406
  2. COUMADIN [Concomitant]
  3. REVATIO [Concomitant]
     Indication: PULMONARY HYPERTENSION

REACTIONS (10)
  - DIZZINESS [None]
  - MUSCULOSKELETAL CHEST PAIN [None]
  - TREATMENT NONCOMPLIANCE [None]
  - THROMBOSIS [None]
  - FALL [None]
  - VERTIGO [None]
  - ASTHMA [None]
  - DYSPNOEA [None]
  - PLEURITIC PAIN [None]
  - BACK PAIN [None]
